FAERS Safety Report 8273856-2 (Version None)
Quarter: 2012Q2

REPORT INFORMATION
  Report Type: 
  Country: None (occurrence: None)
  Receive Date: 20120409
  Receipt Date: 20120326
  Transmission Date: 20120825
  Serious: Yes (Hospitalization)
  Sender: FDA-Public Use
  Company Number: AUR-APL-2012-01463

PATIENT
  Age: 68 Year
  Sex: Female
  Weight: 107 kg

DRUGS (9)
  1. AMITIZA [Concomitant]
  2. ATENOLOL [Concomitant]
  3. CELECOXIB [Suspect]
     Indication: ARTHRITIS
     Dosage: 400 MG (200 MG, 2 IN 1 D), ORAL
     Route: 048
  4. PRILOSEC [Concomitant]
  5. LISINOPRIL [Suspect]
     Indication: PRODUCT USED FOR UNKNOWN INDICATION
  6. HYDROCHLOROTHIAZIDE [Concomitant]
  7. FENOFIBRATE [Concomitant]
  8. HYDROCODONE BITARTRATE [Concomitant]
  9. PRAVASTATIN [Concomitant]

REACTIONS (7)
  - MUSCLE SPASMS [None]
  - BURSITIS [None]
  - SCIATICA [None]
  - RENAL DISORDER [None]
  - PAIN [None]
  - DYSPHONIA [None]
  - SINUSITIS [None]
